FAERS Safety Report 6874665-9 (Version None)
Quarter: 2010Q3

REPORT INFORMATION
  Report Type: 
  Country: None (occurrence: None)
  Receive Date: 20100722
  Receipt Date: 20100709
  Transmission Date: 20110219
  Serious: Yes (Other)
  Sender: FDA-Public Use
  Company Number: CLOF-10322

PATIENT
  Age: 9 Year
  Sex: Female
  Weight: 25.2 kg

DRUGS (21)
  1. CLOFARABINE (CLOFARABINE) [Suspect]
     Indication: ACUTE LYMPHOCYTIC LEUKAEMIA
     Dosage: 20 MG, QDX5, INTRAVENOUS, 19 MG, QD, INTRAVENOUS, 19.4 MG, QD, INTRAVENOUS
     Route: 042
     Dates: start: 20060602, end: 20060606
  2. CLOFARABINE (CLOFARABINE) [Suspect]
     Indication: ACUTE LYMPHOCYTIC LEUKAEMIA
     Dosage: 20 MG, QDX5, INTRAVENOUS, 19 MG, QD, INTRAVENOUS, 19.4 MG, QD, INTRAVENOUS
     Route: 042
     Dates: start: 20060802, end: 20060805
  3. CLOFARABINE (CLOFARABINE) [Suspect]
     Indication: ACUTE LYMPHOCYTIC LEUKAEMIA
     Dosage: 20 MG, QDX5, INTRAVENOUS, 19 MG, QD, INTRAVENOUS, 19.4 MG, QD, INTRAVENOUS
     Route: 042
     Dates: start: 20060705
  4. ETOPOSIDE [Suspect]
     Indication: ACUTE LYMPHOCYTIC LEUKAEMIA
     Dosage: 75 MG, QDX5, INTRAVENOUS, 73 MG, QD, INTRAVENOUS, 73 MG, QD, INTRAVENOUS
     Route: 042
     Dates: start: 20060602, end: 20060606
  5. ETOPOSIDE [Suspect]
     Indication: ACUTE LYMPHOCYTIC LEUKAEMIA
     Dosage: 75 MG, QDX5, INTRAVENOUS, 73 MG, QD, INTRAVENOUS, 73 MG, QD, INTRAVENOUS
     Route: 042
     Dates: start: 20060802, end: 20060805
  6. ETOPOSIDE [Suspect]
     Indication: ACUTE LYMPHOCYTIC LEUKAEMIA
     Dosage: 75 MG, QDX5, INTRAVENOUS, 73 MG, QD, INTRAVENOUS, 73 MG, QD, INTRAVENOUS
     Route: 042
     Dates: start: 20060705
  7. CYCLOPHOSPHAMIDE [Suspect]
     Indication: ACUTE LYMPHOCYTIC LEUKAEMIA
     Dosage: 340 MG, QDX5, INTRAVENOUS, 330 MG, QD, INTRAVENOUS, 330 MG, QD, INTRAVENOUS
     Route: 042
     Dates: start: 20060802, end: 20060805
  8. CYCLOPHOSPHAMIDE [Suspect]
     Indication: ACUTE LYMPHOCYTIC LEUKAEMIA
     Dosage: 340 MG, QDX5, INTRAVENOUS, 330 MG, QD, INTRAVENOUS, 330 MG, QD, INTRAVENOUS
     Route: 042
     Dates: start: 20060602
  9. CYCLOPHOSPHAMIDE [Suspect]
     Indication: ACUTE LYMPHOCYTIC LEUKAEMIA
     Dosage: 340 MG, QDX5, INTRAVENOUS, 330 MG, QD, INTRAVENOUS, 330 MG, QD, INTRAVENOUS
     Route: 042
     Dates: start: 20060705
  10. AMBIEN [Concomitant]
  11. CHLORHEXIDINE GLUCONATE [Concomitant]
  12. LEVAQUIN [Concomitant]
  13. ZOFRAN [Concomitant]
  14. VORICONAZOLE [Concomitant]
  15. BENADRYL [Concomitant]
  16. ACETAMINOPHEN [Concomitant]
  17. MOXIFLOXACIN HCL [Concomitant]
  18. TACROLIMUS [Concomitant]
  19. NYSTATIN [Concomitant]
  20. FAMOTIDINE [Concomitant]
  21. ACYCLOVIR SODIUM (ACICLOVIR) [Concomitant]

REACTIONS (5)
  - CATHETER SITE RELATED REACTION [None]
  - FUNGAL TEST POSITIVE [None]
  - HYPOKALAEMIA [None]
  - TRACHEOMALACIA [None]
  - TRANSFUSION REACTION [None]
